FAERS Safety Report 4651642-X (Version None)
Quarter: 2005Q2

REPORT INFORMATION
  Report Type: 
  Country: None (occurrence: None)
  Receive Date: 20050404
  Receipt Date: 20041104
  Transmission Date: 20051028
  Serious: No
  Sender: FDA-Public Use
  Company Number: USA041183141

PATIENT
  Age: 53 Year
  Sex: Female

DRUGS (1)
  1. CYMBALTA [Suspect]
     Dosage: 30 MG DAY
     Dates: start: 20041103, end: 20041103

REACTIONS (5)
  - HYPERSENSITIVITY [None]
  - NAUSEA [None]
  - NERVOUSNESS [None]
  - PRURITUS [None]
  - THROAT TIGHTNESS [None]
